FAERS Safety Report 8838239 (Version 1)
Quarter: 2012Q4

REPORT INFORMATION
  Report Type: 
  Country: US (occurrence: US)
  Receive Date: 20121012
  Receipt Date: 20121012
  Transmission Date: 20130627
  Serious: Yes (Other)
  Sender: FDA-Public Use
  Company Number: US-ROCHE-1125472

PATIENT
  Sex: Male

DRUGS (2)
  1. NUTROPIN [Suspect]
     Indication: HYPOGLYCAEMIA
     Dosage: dilute with 2 ml, volume 0.38 ml
     Route: 065
     Dates: start: 19970803
  2. NUTROPIN [Suspect]
     Route: 065
     Dates: start: 19971110

REACTIONS (1)
  - Convulsion [Unknown]
